FAERS Safety Report 7638212-6 (Version None)
Quarter: 2011Q3

REPORT INFORMATION
  Report Type: 
  Country: None (occurrence: None)
  Receive Date: 20110722
  Receipt Date: 20110722
  Transmission Date: 20111222
  Serious: Yes (Other)
  Sender: FDA-Public Use
  Company Number: None

PATIENT
  Age: 47 Year
  Sex: Female
  Weight: 69.4003 kg

DRUGS (1)
  1. CYMBALTA [Suspect]
     Indication: PAIN
     Dosage: 60MG ONE DAILY BY MOUTH
     Route: 048
     Dates: start: 20080101

REACTIONS (7)
  - EYE IRRITATION [None]
  - IMPAIRED WORK ABILITY [None]
  - PYREXIA [None]
  - PAIN [None]
  - TREMOR [None]
  - MIGRAINE [None]
  - OCULAR HYPERAEMIA [None]
